FAERS Safety Report 15488204 (Version 1)
Quarter: 2018Q4

REPORT INFORMATION
  Report Type: Spontaneous
  Country: GB (occurrence: GB)
  Receive Date: 20181011
  Receipt Date: 20181011
  Transmission Date: 20190205
  Serious: Yes (Other)
  Sender: FDA-Public Use
  Company Number: GB-ALVOGEN-2018-ALVOGEN-097596

PATIENT
  Sex: Female

DRUGS (1)
  1. ATENOLOL. [Suspect]
     Active Substance: ATENOLOL
     Indication: PRODUCT USED FOR UNKNOWN INDICATION
     Route: 048

REACTIONS (7)
  - Adverse drug reaction [Unknown]
  - Product tampering [Unknown]
  - Hypersensitivity [Unknown]
  - Pain [Unknown]
  - Erythema [Unknown]
  - Swelling [Unknown]
  - Allergic reaction to excipient [Unknown]
